FAERS Safety Report 20451798 (Version 1)
Quarter: 2022Q1

REPORT INFORMATION
  Report Type: Other
  Country: US (occurrence: None)
  Receive Date: 20220209
  Receipt Date: 20220209
  Transmission Date: 20220423
  Serious: Yes (Other)
  Sender: FDA-Public Use
  Company Number: US-ROCHE-3011716

PATIENT
  Sex: Female
  Weight: 93.070 kg

DRUGS (7)
  1. OCREVUS [Suspect]
     Active Substance: OCRELIZUMAB
     Indication: Relapsing-remitting multiple sclerosis
     Dosage: NEXT OCREVUS TREATMENT IS DUE ON 14-FEB-2022.
     Route: 042
     Dates: start: 2019
  2. MODAFINIL [Concomitant]
     Active Substance: MODAFINIL
  3. METHYLPHENIDATE [Concomitant]
     Active Substance: METHYLPHENIDATE
  4. GABAPENTIN [Concomitant]
     Active Substance: GABAPENTIN
  5. VITAMIN D3 [Concomitant]
     Active Substance: CHOLECALCIFEROL
  6. ZYRTEC (UNITED STATES) [Concomitant]
  7. FEMME TAB [Concomitant]

REACTIONS (2)
  - Multiple sclerosis relapse [Unknown]
  - COVID-19 [Unknown]
